FAERS Safety Report 13664098 (Version 1)
Quarter: 2017Q2

REPORT INFORMATION
  Report Type: Spontaneous
  Country: TR (occurrence: TR)
  Receive Date: 20170619
  Receipt Date: 20170619
  Transmission Date: 20170830
  Serious: Yes (Other)
  Sender: FDA-Public Use
  Company Number: TR-FTV20170210-01

PATIENT
  Age: 41 Year
  Sex: Female

DRUGS (2)
  1. FACTIVE [Suspect]
     Active Substance: GEMIFLOXACIN MESYLATE
     Indication: PNEUMONIA
     Route: 048
     Dates: start: 20170131, end: 20170205
  2. FACTIVE [Suspect]
     Active Substance: GEMIFLOXACIN MESYLATE
     Indication: BRONCHITIS
     Route: 048
     Dates: start: 20170131, end: 20170205

REACTIONS (7)
  - Generalised erythema [Recovered/Resolved]
  - Swelling [Recovered/Resolved]
  - Gait disturbance [Recovered/Resolved]
  - Erythema [Recovered/Resolved]
  - Joint lock [Recovered/Resolved]
  - Arthralgia [Recovered/Resolved]
  - Urticaria [Recovered/Resolved]

NARRATIVE: CASE EVENT DATE: 20170131
